FAERS Safety Report 4622306-3 (Version None)
Quarter: 2005Q1

REPORT INFORMATION
  Report Type: 
  Country: None (occurrence: None)
  Receive Date: 20050324
  Receipt Date: 20050324
  Transmission Date: 20050727
  Serious: Yes (Other)
  Sender: FDA-Public Use
  Company Number: None

PATIENT
  Age: 3 Week
  Sex: Female

DRUGS (3)
  1. ERYTHROMYCIN [Suspect]
     Indication: CONJUNCTIVITIS CHLAMYDIAL
     Dosage: 40 MG/KG/DAY ONE 9.8 H
     Route: 048
     Dates: start: 20050312, end: 20050318
  2. NAFICILLIN [Concomitant]
  3. CEFOTAXIME [Concomitant]

REACTIONS (1)
  - GASTRIC OUTLET OBSTRUCTION [None]
